FAERS Safety Report 8000419-6 (Version None)
Quarter: 2011Q4

REPORT INFORMATION
  Report Type: 
  Country: None (occurrence: None)
  Receive Date: 20111222
  Receipt Date: 20110207
  Transmission Date: 20120403
  Serious: No
  Sender: FDA-Public Use
  Company Number: US-BRISTOL-MYERS SQUIBB COMPANY-15537061

PATIENT
  Sex: Female

DRUGS (2)
  1. PLAVIX [Suspect]
     Dosage: INITIAL:ONCE DAILY,DEC10-UNK 3/D FOR 3 MONTHS,UNK-DEC10
     Route: 065
     Dates: end: 20101201
  2. PRAVASTATIN SODIUM [Suspect]
     Route: 065

REACTIONS (2)
  - DRUG DISPENSING ERROR [None]
  - INAPPROPRIATE SCHEDULE OF DRUG ADMINISTRATION [None]
